FAERS Safety Report 9896638 (Version 1)
Quarter: 2014Q1

REPORT INFORMATION
  Report Type: Spontaneous
  Country: US (occurrence: US)
  Receive Date: 20140213
  Receipt Date: 20140213
  Transmission Date: 20141002
  Serious: No
  Sender: FDA-Public Use
  Company Number: US-BRISTOL-MYERS SQUIBB COMPANY-19940790

PATIENT
  Age: 58 Year
  Sex: Female
  Weight: 90.7 kg

DRUGS (14)
  1. ABATACEPT SUBQ INJECTION 125MG/ML [Suspect]
     Indication: RHEUMATOID ARTHRITIS
     Dosage: 1DF:125MG/ML
     Route: 058
  2. METHOTREXATE TABS [Concomitant]
  3. FOLIC ACID [Concomitant]
     Dosage: TABS
  4. TOPROL XL [Concomitant]
     Dosage: TABS
  5. PAXIL [Concomitant]
     Dosage: TABS
  6. WELLBUTRIN [Concomitant]
     Dosage: TABS
  7. AMBIEN [Concomitant]
     Dosage: TABS
  8. GABAPENTIN [Concomitant]
     Dosage: CAPS
  9. MORPHINE SULFATE [Concomitant]
     Dosage: TABS
  10. MULTIVITAMIN [Concomitant]
     Dosage: CAPS
  11. METFORMIN HCL TABS [Concomitant]
  12. LISINOPRIL [Concomitant]
     Dosage: TABS
  13. BACTROBAN [Concomitant]
     Dosage: CREAM 2%
  14. FISH OIL [Concomitant]
     Dosage: CAPS

REACTIONS (2)
  - Staphylococcal infection [Unknown]
  - Weight increased [Unknown]
